FAERS Safety Report 8433279-X (Version None)
Quarter: 2012Q2

REPORT INFORMATION
  Report Type: 
  Country: None (occurrence: None)
  Receive Date: 20120613
  Receipt Date: 20120608
  Transmission Date: 20120825
  Serious: No
  Sender: FDA-Public Use
  Company Number: US-PFIZER INC-2012138669

PATIENT
  Sex: Female
  Weight: 99.773 kg

DRUGS (1)
  1. PREMARIN [Suspect]
     Dosage: UNK
     Route: 067
     Dates: start: 20111001

REACTIONS (4)
  - ASTHENIA [None]
  - HEADACHE [None]
  - FEELING ABNORMAL [None]
  - DIZZINESS [None]
